FAERS Safety Report 8619926 (Version 3)
Quarter: 2017Q3

REPORT INFORMATION
  Report Type: Spontaneous
  Country: FR (occurrence: FR)
  Receive Date: 20120618
  Receipt Date: 20170712
  Transmission Date: 20171128
  Serious: Yes (Other)
  Sender: FDA-Public Use
  Company Number: PHHY2012FR051165

PATIENT
  Age: 91 Year
  Sex: Female

DRUGS (20)
  1. SINTROM [Interacting]
     Active Substance: ACENOCOUMAROL
     Route: 065
     Dates: start: 20120425
  2. PIPERACILLIN AND TAZOBACTAM [Interacting]
     Active Substance: PIPERACILLIN SODIUM\TAZOBACTAM SODIUM
     Indication: BACTERAEMIA
     Dosage: 500 MG, QID
     Route: 042
     Dates: start: 20120506, end: 20120509
  3. GENTAMICIN ^PANPHARMA^ [Interacting]
     Active Substance: GENTAMICIN
     Indication: BACTERAEMIA
     Route: 065
     Dates: start: 20120506, end: 20120509
  4. HEMIGOXINE [Concomitant]
     Active Substance: DIGOXIN
     Dosage: 1 DF, UNK
     Route: 065
  5. TRIATEC [Concomitant]
     Active Substance: RAMIPRIL
     Dosage: 1.25 MG, QD
  6. PARACETAMOL [Concomitant]
     Active Substance: ACETAMINOPHEN
  7. LASILIX [Concomitant]
     Active Substance: FUROSEMIDE
     Dosage: 10 MG, UNK
  8. SPECIAFOLDINE [Concomitant]
     Active Substance: FOLIC ACID
     Dosage: 1 DF, QD
  9. IXPRIM [Concomitant]
     Active Substance: ACETAMINOPHEN\TRAMADOL HYDROCHLORIDE
  10. MOVICOL [Concomitant]
     Active Substance: POLYETHYLENE GLYCOL 3350\POTASSIUM CHLORIDE\SODIUM BICARBONATE\SODIUM CHLORIDE
     Dosage: 1 DF, UNK
  11. TIENAM [Interacting]
     Active Substance: CILASTATIN SODIUM\IMIPENEM
     Route: 042
     Dates: start: 20120507, end: 20120521
  12. INNOHEP [Concomitant]
     Active Substance: TINZAPARIN SODIUM
     Dosage: 10000 IU, UNK
  13. VANCOMYCIN SANDOZ [Suspect]
     Active Substance: VANCOMYCIN
     Dosage: 500 MG, BID
     Route: 042
     Dates: start: 20120506, end: 20120508
  14. LOXEN [Concomitant]
     Active Substance: NICARDIPINE HYDROCHLORIDE
     Dosage: 50 MG, BID
     Route: 065
  15. AMLOR [Concomitant]
     Active Substance: AMLODIPINE BESYLATE
     Dosage: 1 DF, QD
  16. AMIKACIN [Interacting]
     Active Substance: AMIKACIN
     Route: 065
     Dates: start: 20120507, end: 20120510
  17. STILNOX [Concomitant]
     Active Substance: ZOLPIDEM TARTRATE
     Dosage: 10 MG, QD
     Route: 065
  18. DIFFU K [Concomitant]
     Active Substance: POTASSIUM CHLORIDE
     Dosage: 600 MG, BID
  19. TEMERIT [Concomitant]
     Active Substance: NEBIVOLOL
     Dosage: 0.5 DF, UNK
     Route: 065
  20. FUMAFER [Concomitant]
     Active Substance: FERROUS FUMARATE
     Dosage: 1 DF, QD

REACTIONS (3)
  - International normalised ratio increased [Recovered/Resolved]
  - Drug interaction [Unknown]
  - Overdose [Recovered/Resolved]

NARRATIVE: CASE EVENT DATE: 20120520
